FAERS Safety Report 5457748-X (Version None)
Quarter: 2007Q3

REPORT INFORMATION
  Report Type: 
  Country: None (occurrence: None)
  Receive Date: 20070918
  Receipt Date: 20070907
  Transmission Date: 20080115
  Serious: Yes (Other)
  Sender: FDA-Public Use
  Company Number: GB-PFIZER INC-2007075152

PATIENT
  Age: 60 Year
  Sex: Male
  Weight: 102 kg

DRUGS (5)
  1. CHAMPIX [Suspect]
     Indication: EX-SMOKER
     Route: 048
     Dates: start: 20070814, end: 20070815
  2. ATORVASTATIN CALCIUM [Concomitant]
     Route: 048
  3. FELODIPINE [Concomitant]
     Route: 048
  4. LOSARTAN POSTASSIUM [Concomitant]
     Route: 048
  5. RISPERIDONE [Concomitant]
     Route: 048

REACTIONS (6)
  - DIARRHOEA [None]
  - EPISTAXIS [None]
  - LACRIMATION INCREASED [None]
  - MOOD SWINGS [None]
  - RHINORRHOEA [None]
  - VOMITING [None]
